FAERS Safety Report 15075480 (Version 1)
Quarter: 2018Q2

REPORT INFORMATION
  Report Type: Report from Study
  Country: US (occurrence: US)
  Receive Date: 20180627
  Receipt Date: 20180627
  Transmission Date: 20180711
  Serious: Yes (Other)
  Sender: FDA-Public Use
  Company Number: US-SAOL THERAPEUTICS-2018SAO00558

PATIENT
  Age: 66 Year
  Sex: Female

DRUGS (12)
  1. HYDROMORPHONE [Suspect]
     Active Substance: HYDROMORPHONE
     Dosage: 0.5840 MG, \DAY - MAX
     Route: 037
     Dates: end: 20180307
  2. BUPIVACAINE. [Suspect]
     Active Substance: BUPIVACAINE
     Dosage: 2.852 MG, \DAY
     Route: 037
     Dates: end: 20180307
  3. BUPIVACAINE. [Suspect]
     Active Substance: BUPIVACAINE
     Dosage: 8.898 MG, \DAY - MAX
     Route: 037
     Dates: start: 20180307
  4. BUPIVACAINE. [Suspect]
     Active Substance: BUPIVACAINE
     Dosage: 2.999 MG, \DAY
     Route: 037
     Dates: start: 20180307
  5. COMPOUNDED BACLOFEN [Suspect]
     Active Substance: BACLOFEN
     Dosage: 19.01 ?G, \DAY
     Route: 037
     Dates: end: 20180307
  6. HYDROMORPHONE [Suspect]
     Active Substance: HYDROMORPHONE
     Dosage: 0.1901 MG, \DAY
     Route: 037
     Dates: end: 20180307
  7. COMPOUNDED BACLOFEN [Suspect]
     Active Substance: BACLOFEN
     Dosage: 19.99 ?G, \DAY
     Route: 037
     Dates: start: 20180307
  8. HYDROMORPHONE [Suspect]
     Active Substance: HYDROMORPHONE
     Dosage: 0.5932 MG, \DAY - MAX
     Route: 037
     Dates: start: 20180307
  9. COMPOUNDED BACLOFEN [Suspect]
     Active Substance: BACLOFEN
     Dosage: 59.32 ?G, \DAY - MAX
     Route: 037
     Dates: start: 20180307
  10. HYDROMORPHONE [Suspect]
     Active Substance: HYDROMORPHONE
     Dosage: 0.1999 MG, \DAY
     Route: 037
     Dates: start: 20180307
  11. COMPOUNDED BACLOFEN [Suspect]
     Active Substance: BACLOFEN
     Dosage: 58.40 ?G, \DAY - MAX
     Route: 037
     Dates: end: 20180307
  12. BUPIVACAINE. [Suspect]
     Active Substance: BUPIVACAINE
     Dosage: 8.760 MG, \DAY - MAX
     Route: 037
     Dates: end: 20180307

REACTIONS (1)
  - Implant site infection [Recovered/Resolved]

NARRATIVE: CASE EVENT DATE: 20180314
